FAERS Safety Report 9147739 (Version 1)
Quarter: 2013Q1

REPORT INFORMATION
  Report Type: Spontaneous
  Country: DE (occurrence: DE)
  Receive Date: 20130307
  Receipt Date: 20130307
  Transmission Date: 20140127
  Serious: Yes (Hospitalization)
  Sender: FDA-Public Use
  Company Number: DE-ELI_LILLY_AND_COMPANY-DE201302010092

PATIENT
  Age: 82 Year
  Sex: Male
  Weight: 55.7 kg

DRUGS (1)
  1. GEMZAR [Suspect]
     Indication: PANCREATIC CARCINOMA
     Dosage: UNK
     Route: 042
     Dates: start: 201211, end: 201301

REACTIONS (2)
  - Alveolitis [Recovering/Resolving]
  - Pneumonia [Recovering/Resolving]
